FAERS Safety Report 6611712-3 (Version None)
Quarter: 2010Q1

REPORT INFORMATION
  Report Type: 
  Country: None (occurrence: None)
  Receive Date: 20100301
  Receipt Date: 20100301
  Transmission Date: 20100710
  Serious: No
  Sender: FDA-Public Use
  Company Number: None

PATIENT
  Age: 73 Year
  Sex: Female

DRUGS (1)
  1. PULMICORT [Suspect]
     Indication: ASTHMA
     Dosage: USE 2 INHALATIONS TWICE A DAY

REACTIONS (3)
  - DEVICE MALFUNCTION [None]
  - DYSPNOEA [None]
  - INCORRECT DOSE ADMINISTERED [None]
